FAERS Safety Report 5219836-2 (Version None)
Quarter: 2007Q1

REPORT INFORMATION
  Report Type: 
  Country: None (occurrence: None)
  Receive Date: 20070125
  Receipt Date: 20070113
  Transmission Date: 20070707
  Serious: Yes (Other)
  Sender: FDA-Public Use
  Company Number: IN-PFIZER INC-2007004474

PATIENT
  Sex: Female
  Weight: 60 kg

DRUGS (3)
  1. LYRICA [Suspect]
     Indication: SPINAL OSTEOARTHRITIS
     Route: 048
  2. ALL OTHER THERAPEUTIC PRODUCTS [Interacting]
     Indication: SPINAL OSTEOARTHRITIS
     Route: 048
  3. NSAID'S [Concomitant]
     Indication: SPINAL OSTEOARTHRITIS

REACTIONS (4)
  - DRUG INTERACTION [None]
  - INSOMNIA [None]
  - MUSCLE TWITCHING [None]
  - RESTLESSNESS [None]
